FAERS Safety Report 22213266 (Version 4)
Quarter: 2023Q2

REPORT INFORMATION
  Report Type: Spontaneous
  Country: US (occurrence: US)
  Receive Date: 20230414
  Receipt Date: 20230614
  Transmission Date: 20230722
  Serious: Yes (Other)
  Sender: FDA-Public Use
  Company Number: US-BRISTOL-MYERS SQUIBB COMPANY-2023-050718

PATIENT
  Age: 78 Year
  Sex: Female

DRUGS (2)
  1. POMALYST [Suspect]
     Active Substance: POMALIDOMIDE
     Indication: Plasma cell myeloma
     Dosage: TAKE 1 WHOLE CAP BY MOUTH AT THE SAME TIME DAILY W/ WATER. TAKE W/OUT FOOD, 2 HRS BEFORE OR 2 HRS AF
     Route: 048
     Dates: start: 20230327
  2. POMALYST [Suspect]
     Active Substance: POMALIDOMIDE
     Dosage: TAKE 1 WHOLE CAP BY MOUTH AT THE SAME TIME DAILY W/ WATER. TAKE W/OUT FOOD, 2 HRS BEFORE OR 2 HRS AF
     Route: 048

REACTIONS (3)
  - Fatigue [Recovering/Resolving]
  - Hypersomnia [Recovering/Resolving]
  - Upper respiratory tract infection [Not Recovered/Not Resolved]
